FAERS Safety Report 6572913-6 (Version None)
Quarter: 2010Q1

REPORT INFORMATION
  Report Type: 
  Country: None (occurrence: None)
  Receive Date: 20100208
  Receipt Date: 20100203
  Transmission Date: 20100710
  Serious: No
  Sender: FDA-Public Use
  Company Number: US-ASTRAZENECA-2009UW20470

PATIENT
  Age: 32 Year
  Sex: Female
  Weight: 86.2 kg

DRUGS (13)
  1. SEROQUEL [Suspect]
     Indication: BIPOLAR DISORDER
     Dosage: 25-100 MG 1 DAILY
     Route: 048
     Dates: start: 20000101, end: 20040101
  2. SEROQUEL [Suspect]
     Indication: MANIA
     Dosage: 25-100 MG 1 DAILY
     Route: 048
     Dates: start: 20000101, end: 20040101
  3. LITHIUM CARBONATE [Concomitant]
     Indication: SCHIZOPHRENIA
     Dates: start: 20010101, end: 20040101
  4. RISPERDAL [Concomitant]
     Indication: SCHIZOPHRENIA
     Dates: start: 20030101, end: 20040101
  5. LAMICTAL [Concomitant]
     Indication: SCHIZOPHRENIA
     Dosage: 200 MG , 3 DAILY
     Dates: start: 20040101
  6. GABITRIL [Concomitant]
     Indication: BIPOLAR DISORDER
     Dosage: 4 MG, 3 DAILY
     Dates: start: 20040101
  7. TRAZODONE HCL [Concomitant]
     Indication: DEPRESSION
     Dates: start: 20020101, end: 20040101
  8. CELEXA [Concomitant]
     Indication: DEPRESSION
     Dates: start: 20020101, end: 20040101
  9. CYMBALTA [Concomitant]
     Indication: DEPRESSION
     Dosage: 60 MG, 2 PER  DAY
     Dates: start: 20040101
  10. KLONOPIN [Concomitant]
     Indication: ANXIETY DISORDER
     Dates: start: 20010101
  11. NYSTATIN [Concomitant]
  12. ABILIFY [Concomitant]
  13. GEODON [Concomitant]

REACTIONS (5)
  - BLOOD CHOLESTEROL INCREASED [None]
  - HYPERLIPIDAEMIA [None]
  - OBESITY [None]
  - TYPE 2 DIABETES MELLITUS [None]
  - WEIGHT INCREASED [None]
